FAERS Safety Report 4815065-2 (Version None)
Quarter: 2005Q4

REPORT INFORMATION
  Report Type: 
  Country: None (occurrence: None)
  Receive Date: 20051026
  Receipt Date: 20051011
  Transmission Date: 20060501
  Serious: Yes (Other)
  Sender: FDA-Public Use
  Company Number: DE_050917003

PATIENT
  Age: 51 Year
  Sex: Female
  Weight: 72 kg

DRUGS (2)
  1. CYMBALTA [Suspect]
     Indication: DEPRESSION
     Dosage: 60  MG DAY
     Dates: start: 20050809
  2. THYROXIN               (LEVOTHYROXINE SODIUM) [Concomitant]

REACTIONS (10)
  - ATRIAL HYPERTROPHY [None]
  - CYSTITIS [None]
  - GLAUCOMA [None]
  - HEADACHE [None]
  - HYPERHIDROSIS [None]
  - HYPERTENSION [None]
  - ILL-DEFINED DISORDER [None]
  - INFLUENZA [None]
  - MYDRIASIS [None]
  - RETINAL EXUDATES [None]
